FAERS Safety Report 9456194 (Version 1)
Quarter: 2013Q3

REPORT INFORMATION
  Report Type: Spontaneous
  Country: DE (occurrence: DE)
  Receive Date: 20130813
  Receipt Date: 20130813
  Transmission Date: 20140515
  Serious: Yes (Life-Threatening, Hospitalization, Disabling)
  Sender: FDA-Public Use
  Company Number: GXKR2013DE002687

PATIENT
  Age: 21 Year
  Sex: Female

DRUGS (1)
  1. CHLORMADINONE+ETHINYLESTRADIOL [Suspect]
     Indication: CONTRACEPTION
     Dosage: 2MG/0.03MG, QD
     Route: 048

REACTIONS (3)
  - Cerebral infarction [Not Recovered/Not Resolved]
  - Pulmonary embolism [Not Recovered/Not Resolved]
  - Deep vein thrombosis [Not Recovered/Not Resolved]
